FAERS Safety Report 5331765-2 (Version None)
Quarter: 2007Q2

REPORT INFORMATION
  Report Type: 
  Country: None (occurrence: None)
  Receive Date: 20070517
  Receipt Date: 20070510
  Transmission Date: 20071010
  Serious: Yes (Hospitalization, Other)
  Sender: FDA-Public Use
  Company Number: 163-20785-07030751

PATIENT
  Age: 59 Year
  Sex: Male

DRUGS (2)
  1. THALOMID [Suspect]
     Indication: MULTIPLE MYELOMA
     Dosage: 100 MG, 1 IN 1 D, ORAL
     Route: 048
     Dates: start: 20070211, end: 20070222
  2. DEXAMETHASONE TAB [Suspect]
     Indication: MULTIPLE MYELOMA
     Dates: start: 20070211, end: 20070222

REACTIONS (8)
  - ALANINE AMINOTRANSFERASE INCREASED [None]
  - ASPARTATE AMINOTRANSFERASE INCREASED [None]
  - ASTHMA [None]
  - FLUID RETENTION [None]
  - HEPATIC FUNCTION ABNORMAL [None]
  - JAUNDICE [None]
  - OEDEMA PERIPHERAL [None]
  - RESPIRATORY FAILURE [None]
